FAERS Safety Report 14366275 (Version 4)
Quarter: 2018Q1

REPORT INFORMATION
  Report Type: Report from Study
  Country: None (occurrence: BE)
  Receive Date: 20180109
  Receipt Date: 20180204
  Transmission Date: 20180509
  Serious: Yes (Hospitalization)
  Sender: FDA-Public Use
  Company Number: BE-ABBVIE-17K-013-2198494-00

PATIENT
  Sex: Male

DRUGS (5)
  1. DUODOPA [Suspect]
     Active Substance: CARBIDOPA\LEVODOPA
     Dosage: AM: 1.2ML; CD: 3.1ML/H FOR 16 HRS; ED: 0.8ML
     Route: 050
     Dates: start: 20180129
  2. DUODOPA [Suspect]
     Active Substance: CARBIDOPA\LEVODOPA
     Dosage: MD=8ML??CD=4ML/HR DURING 16HRS ??ED=3ML
     Route: 050
     Dates: start: 20081210, end: 20081229
  3. DUODOPA [Suspect]
     Active Substance: CARBIDOPA\LEVODOPA
     Indication: PARKINSON^S DISEASE
     Route: 050
     Dates: start: 20081208, end: 20081210
  4. DUODOPA [Suspect]
     Active Substance: CARBIDOPA\LEVODOPA
     Dosage: DOSES CONTINUOUSLY MONITORED AND ADAPTED
     Route: 050
     Dates: start: 20081229, end: 20170912
  5. DUODOPA [Suspect]
     Active Substance: CARBIDOPA\LEVODOPA
     Dosage: MD=1.2ML??CD=3.1ML/HR DURING 16HRS ??ED=0.8ML
     Route: 050
     Dates: start: 20170912, end: 2017

REACTIONS (5)
  - Stoma site inflammation [Unknown]
  - Post procedural fistula [Recovered/Resolved]
  - Hospitalisation [Unknown]
  - Stoma site extravasation [Recovered/Resolved]
  - Device dislocation [Recovered/Resolved]
